FAERS Safety Report 23222759 (Version 1)
Quarter: 2023Q4

REPORT INFORMATION
  Report Type: Spontaneous
  Country: US (occurrence: US)
  Receive Date: 20231123
  Receipt Date: 20231123
  Transmission Date: 20240110
  Serious: No
  Sender: FDA-Public Use
  Company Number: US-SA-SAC20231117000048

PATIENT
  Sex: Female

DRUGS (28)
  1. DUPIXENT [Suspect]
     Active Substance: DUPILUMAB
     Indication: Nasal polyps
     Dosage: 300 MG, QOW
     Route: 058
     Dates: start: 20221214
  2. BERBERINE COMPLEX [Concomitant]
  3. CHARCOAL [Concomitant]
     Active Substance: ACTIVATED CHARCOAL
  4. ZINC [Concomitant]
     Active Substance: PYRITHIONE ZINC\ZINC\ZINC CHLORIDE
  5. FLOVENT [Concomitant]
     Active Substance: FLUTICASONE PROPIONATE
  6. GABAPENTIN [Concomitant]
     Active Substance: GABAPENTIN
  7. GRAPE SEED EXTRACT [VITIS VINIFERA SEED] [Concomitant]
  8. GRAPEFRUIT [Concomitant]
     Active Substance: GRAPEFRUIT
  9. GUAIFENESIN [Concomitant]
     Active Substance: GUAIFENESIN
  10. IBUPROFEN [Concomitant]
     Active Substance: IBUPROFEN
  11. MAXALT [Concomitant]
     Active Substance: RIZATRIPTAN BENZOATE
  12. NASACORT [Concomitant]
     Active Substance: TRIAMCINOLONE ACETONIDE
  13. NASALCROM [Concomitant]
     Active Substance: CROMOLYN SODIUM
  14. PROAIR HFA [Concomitant]
     Active Substance: ALBUTEROL SULFATE
  15. PROTONIX [Concomitant]
     Active Substance: PANTOPRAZOLE SODIUM
  16. TUMS EX [Concomitant]
     Active Substance: CALCIUM CARBONATE
  17. VITAMIN B6 [Concomitant]
     Active Substance: PYRIDOXINE HYDROCHLORIDE
  18. VITAMIN C [Concomitant]
     Active Substance: ASCORBIC ACID
  19. VITAMIN C [Concomitant]
     Active Substance: ASCORBIC ACID
  20. VITAMIN D NOS [Concomitant]
     Active Substance: VITAMIN D NOS
  21. WORMWOOD [Concomitant]
     Active Substance: WORMWOOD
  22. BIFIDOBACTERIUM ANIMALIS LACTIS [Concomitant]
     Active Substance: BIFIDOBACTERIUM ANIMALIS LACTIS
  23. MAGNESIUM [Concomitant]
     Active Substance: MAGNESIUM
  24. HYDROXYZINE HYDROCHLORIDE [Concomitant]
     Active Substance: HYDROXYZINE HYDROCHLORIDE
  25. CRANBERRY [Concomitant]
     Active Substance: CRANBERRY
     Dosage: 10MG
  26. ARMOUR THYROID [Concomitant]
     Active Substance: THYROID, PORCINE
  27. DIETARY SUPPLEMENT\HERBALS [Concomitant]
     Active Substance: DIETARY SUPPLEMENT\HERBALS
  28. GUAIFENESIN [Concomitant]
     Active Substance: GUAIFENESIN

REACTIONS (1)
  - Thyroid hormones decreased [Unknown]
